FAERS Safety Report 13991524 (Version 1)
Quarter: 2017Q3

REPORT INFORMATION
  Report Type: Spontaneous
  Country: US (occurrence: US)
  Receive Date: 20170920
  Receipt Date: 20170920
  Transmission Date: 20171128
  Serious: No
  Sender: FDA-Public Use
  Company Number: US-LUPIN PHARMACEUTICALS INC.-2017-03802

PATIENT
  Sex: Female

DRUGS (1)
  1. MISOPROSTOL TABLET, 0.1 MG [Suspect]
     Active Substance: MISOPROSTOL
     Indication: LABOUR INDUCTION
     Dosage: UNK, UNK
     Route: 065

REACTIONS (2)
  - Product use in unapproved indication [Unknown]
  - Uterine hyperstimulation [Unknown]
